FAERS Safety Report 10306161 (Version 2)
Quarter: 2014Q3

REPORT INFORMATION
  Report Type: Spontaneous
  Country: US (occurrence: US)
  Receive Date: 20140715
  Receipt Date: 20140730
  Transmission Date: 20150326
  Serious: Yes (Other)
  Sender: FDA-Public Use
  Company Number: CHPA2014US009380

PATIENT
  Age: 75 Year
  Sex: Female

DRUGS (5)
  1. GAS-X [Suspect]
     Active Substance: DIMETHICONE
     Dosage: 1 DF, PRN
     Route: 048
     Dates: start: 2013
  2. TIMOLOL MALEATE. [Concomitant]
     Active Substance: TIMOLOL MALEATE
     Indication: OCULAR HYPERTENSION
     Dosage: 1 DF, BID
     Route: 047
  3. GAS-X [Suspect]
     Active Substance: DIMETHICONE
     Indication: FLATULENCE
     Dosage: 1 DF, PRN
     Route: 048
     Dates: start: 201406
  4. ADVAIR DISKUS [Concomitant]
     Active Substance: FLUTICASONE PROPIONATE\SALMETEROL XINAFOATE
     Indication: DYSPNOEA
     Route: 055
  5. ALLEGRA [Concomitant]
     Active Substance: FEXOFENADINE HYDROCHLORIDE
     Indication: SINUSITIS
     Dosage: 1 DF, QD
     Route: 048

REACTIONS (1)
  - Glaucoma [Not Recovered/Not Resolved]
